FAERS Safety Report 13344872 (Version 2)
Quarter: 2017Q2

REPORT INFORMATION
  Report Type: Spontaneous
  Country: US (occurrence: US)
  Receive Date: 20170317
  Receipt Date: 20170606
  Transmission Date: 20170830
  Serious: No
  Sender: FDA-Public Use
  Company Number: US-LEO PHARMA-300324

PATIENT
  Sex: Female

DRUGS (2)
  1. PICATO [Suspect]
     Active Substance: INGENOL MEBUTATE
     Indication: PRECANCEROUS SKIN LESION
     Route: 061
     Dates: start: 20170302, end: 20170304
  2. PICATO [Suspect]
     Active Substance: INGENOL MEBUTATE
     Route: 061

REACTIONS (4)
  - Inappropriate schedule of drug administration [Unknown]
  - Drug administration error [Unknown]
  - Application site erythema [Recovered/Resolved]
  - Drug ineffective [Unknown]
